FAERS Safety Report 25702760 (Version 1)
Quarter: 2025Q3

REPORT INFORMATION
  Report Type: Report from Study
  Country: IN (occurrence: IN)
  Receive Date: 20250819
  Receipt Date: 20250819
  Transmission Date: 20251020
  Serious: Yes (Other)
  Sender: VERITY PHARMACEUTICALS INC.
  Company Number: IN-VER-202500009

PATIENT
  Sex: Female

DRUGS (4)
  1. TRIPTORELIN [Suspect]
     Active Substance: TRIPTORELIN
     Indication: In vitro fertilisation
     Route: 065
  2. TRIPTORELIN [Suspect]
     Active Substance: TRIPTORELIN
     Indication: Infertility
     Route: 065
  3. CHORIOGONADOTROPIN ALFA [Concomitant]
     Active Substance: CHORIOGONADOTROPIN ALFA
     Indication: Product used for unknown indication
     Route: 065
  4. CETRORELIX ACETATE [Concomitant]
     Active Substance: CETRORELIX ACETATE
     Indication: Product used for unknown indication
     Route: 065

REACTIONS (2)
  - Abortion spontaneous [Unknown]
  - Off label use [Unknown]
